FAERS Safety Report 25002755 (Version 1)
Quarter: 2025Q1

REPORT INFORMATION
  Report Type: Spontaneous
  Country: MX (occurrence: MX)
  Receive Date: 20250224
  Receipt Date: 20250224
  Transmission Date: 20250409
  Serious: Yes (Death, Life-Threatening, Hospitalization, Other)
  Sender: GLAXOSMITHKLINE
  Company Number: MX-GSK-MX2025GSK021532

PATIENT

DRUGS (2)
  1. LAMOTRIGINE [Suspect]
     Active Substance: LAMOTRIGINE
     Indication: Product used for unknown indication
     Dosage: 25 MG, 1D (1.4 MG/KG/DAY)
  2. VALPROATE MAGNESIUM [Concomitant]
     Active Substance: VALPROATE MAGNESIUM
     Indication: Cortical dysplasia

REACTIONS (11)
  - Toxic epidermal necrolysis [Fatal]
  - Septic shock [Fatal]
  - Multiple organ dysfunction syndrome [Fatal]
  - Enterococcal infection [Fatal]
  - Acinetobacter infection [Fatal]
  - Pseudomonas infection [Fatal]
  - Thrombocytopenia [Unknown]
  - Gastrointestinal haemorrhage [Unknown]
  - Cardiac arrest [Unknown]
  - Coagulopathy [Unknown]
  - Metabolic acidosis [Unknown]
